FAERS Safety Report 26218337 (Version 1)
Quarter: 2025Q4

REPORT INFORMATION
  Report Type: Report from Study
  Country: CA (occurrence: CA)
  Receive Date: 20251231
  Receipt Date: 20251231
  Transmission Date: 20260117
  Serious: Yes (Other)
  Sender: PFIZER
  Company Number: CA-PFIZER INC-202500194296

PATIENT
  Age: 70 Year
  Sex: Male
  Weight: 72 kg

DRUGS (5)
  1. IXIFI [Suspect]
     Active Substance: INFLIXIMAB-QBTX
     Indication: Colitis ulcerative
     Dosage: 7500 UG/KG, EVERY 6 WEEKS
     Route: 042
     Dates: start: 20250526
  2. IXIFI [Suspect]
     Active Substance: INFLIXIMAB-QBTX
     Dosage: UNK
     Route: 042
     Dates: start: 20250819
  3. IXIFI [Suspect]
     Active Substance: INFLIXIMAB-QBTX
     Dosage: 540 MG, EVERY 6 WEEKS
     Route: 042
     Dates: start: 20250926
  4. IXIFI [Suspect]
     Active Substance: INFLIXIMAB-QBTX
     Dosage: 7500 UG/KG, EVERY 6 WEEKS
     Route: 042
     Dates: start: 20251110
  5. IXIFI [Suspect]
     Active Substance: INFLIXIMAB-QBTX
     Dosage: 495 MG, EVERY 6 WEEKS (7500 UG/KG, EVERY 6 WEEKS)
     Route: 042
     Dates: start: 20251222

REACTIONS (2)
  - Hepatic cirrhosis [Unknown]
  - Ascites [Unknown]

NARRATIVE: CASE EVENT DATE: 20251001
